FAERS Safety Report 16371719 (Version 2)
Quarter: 2019Q2

REPORT INFORMATION
  Report Type: Report from Study
  Country: DE (occurrence: DE)
  Receive Date: 20190530
  Receipt Date: 20190620
  Transmission Date: 20190711
  Serious: Yes (Death, Other)
  Sender: FDA-Public Use
  Company Number: DE-MYLANLABS-2019M1050937

PATIENT
  Age: 49 Year
  Sex: Male

DRUGS (3)
  1. CLOZAPINE. [Suspect]
     Active Substance: CLOZAPINE
     Indication: SCHIZOPHRENIA
     Route: 065
  2. PIPAMPERONE [Suspect]
     Active Substance: PIPAMPERONE
     Indication: SCHIZOPHRENIA
     Dosage: 120 MG, A NUMBER OF EMPTY TABLET BLISTERS OF PIPAMPERONE 120 MG WERE FOUND, TOOK MORE THAN 2000MG..
     Route: 065
  3. LORAZEPAM. [Concomitant]
     Active Substance: LORAZEPAM
     Indication: SCHIZOPHRENIA
     Route: 065

REACTIONS (9)
  - Brain oedema [Fatal]
  - Increased bronchial secretion [Fatal]
  - Pulmonary congestion [Fatal]
  - Conjunctival haemorrhage [Fatal]
  - Poisoning [Fatal]
  - Toxicity to various agents [Fatal]
  - Paralysis [Fatal]
  - Pulmonary oedema [Fatal]
  - Eyelid bleeding [Fatal]
